FAERS Safety Report 8144424-8 (Version None)
Quarter: 2012Q1

REPORT INFORMATION
  Report Type: 
  Country: None (occurrence: None)
  Receive Date: 20120217
  Receipt Date: 20120213
  Transmission Date: 20120608
  Serious: Yes (Death, Hospitalization, Other)
  Sender: FDA-Public Use
  Company Number: ES-PFIZER INC-2011201211

PATIENT
  Age: 69 Year
  Sex: Male

DRUGS (10)
  1. FUROSEMIDE [Concomitant]
     Dosage: 40 MG, 1X/DAY
  2. ALDACTONE [Concomitant]
     Dosage: 50 MG, 1X/DAY
  3. IMATINIB MESILATE [Concomitant]
     Indication: GASTROINTESTINAL STROMAL TUMOUR
     Dosage: 400 MG, 1X/DAY
     Route: 048
     Dates: start: 20090929, end: 20110301
  4. IMATINIB MESILATE [Concomitant]
     Dosage: 800 MG, 1X/DAY
     Route: 048
     Dates: start: 20110301, end: 20110501
  5. BEMIPARIN [Concomitant]
     Dosage: 3500 IU, 1X/DAY
     Route: 058
  6. SUTENT [Suspect]
     Indication: GASTROINTESTINAL STROMAL TUMOUR
     Dosage: 50 MG, 1X/DAY, 4 WEEKS ON / 2 WEEKS OFF
     Route: 048
     Dates: start: 20110506, end: 20110524
  7. OMEPRAZOLE [Concomitant]
     Dosage: 20 MG, 1X/DAY
  8. ALLOPURINOL [Concomitant]
     Dosage: 300 MG, 1X/DAY
  9. DOMPERIDONE [Concomitant]
     Indication: VOMITING
     Dosage: 10 MG, 3X/DAY
  10. DILTIAZEM [Concomitant]
     Dosage: 200 MG, 1X/DAY

REACTIONS (5)
  - THROMBOCYTOPENIA [None]
  - HYPERBILIRUBINAEMIA [None]
  - ECCHYMOSIS [None]
  - BLOOD LACTATE DEHYDROGENASE INCREASED [None]
  - ENCEPHALOPATHY [None]
